FAERS Safety Report 16066374 (Version 1)
Quarter: 2019Q1

REPORT INFORMATION
  Report Type: Spontaneous
  Country: DE (occurrence: DE)
  Receive Date: 20190313
  Receipt Date: 20190313
  Transmission Date: 20190418
  Serious: Yes (Other)
  Sender: FDA-Public Use
  Company Number: DE-TORRENT-00013502

PATIENT
  Age: 41 Year
  Sex: Female
  Weight: 100 kg

DRUGS (6)
  1. LEPONEX [Suspect]
     Active Substance: CLOZAPINE
     Indication: SCHIZOAFFECTIVE DISORDER
     Dosage: 350 [MG/D ]/ INITIAL 225MG/D, INCREASING DOSAGE TO 350MG/D
     Route: 048
     Dates: start: 20171105, end: 20180724
  2. RISPERDAL [Suspect]
     Active Substance: RISPERIDONE
     Indication: SCHIZOAFFECTIVE DISORDER
     Dosage: 2 [MG/D ]
     Route: 048
  3. FOLSAURE ABZ [Concomitant]
     Indication: VITAMIN SUPPLEMENTATION
     Dosage: 5 [MG/D ]
     Route: 048
     Dates: start: 20180518, end: 20180518
  4. ARIPIPRAZOL [Concomitant]
     Active Substance: ARIPIPRAZOLE
     Indication: SCHIZOAFFECTIVE DISORDER
     Dosage: UNKNOWN
     Route: 048
     Dates: start: 20171109, end: 20171109
  5. HALOPERIDOL. [Concomitant]
     Active Substance: HALOPERIDOL
     Indication: SCHIZOAFFECTIVE DISORDER
     Dosage: 6 [MG/D ]
     Route: 048
     Dates: start: 20180514, end: 20180724
  6. SERTRALINE [Suspect]
     Active Substance: SERTRALINE HYDROCHLORIDE
     Indication: SCHIZOAFFECTIVE DISORDER
     Dosage: UNKNOWN
     Route: 048
     Dates: start: 20171105, end: 20180201

REACTIONS (2)
  - Gestational diabetes [Recovered/Resolved]
  - Polyhydramnios [Recovered/Resolved]
